FAERS Safety Report 5913175-X (Version None)
Quarter: 2008Q4

REPORT INFORMATION
  Report Type: 
  Country: None (occurrence: None)
  Receive Date: 20081006
  Receipt Date: 20080929
  Transmission Date: 20090506
  Serious: Yes (Death)
  Sender: FDA-Public Use
  Company Number: 2008AL010662

PATIENT
  Age: 71 Year
  Sex: Male

DRUGS (2)
  1. DIGOXIN [Suspect]
     Indication: CARDIAC FAILURE CONGESTIVE
     Dosage: PO
     Route: 048
  2. COREG [Concomitant]

REACTIONS (2)
  - DRUG INEFFECTIVE [None]
  - EJECTION FRACTION DECREASED [None]
